FAERS Safety Report 10086396 (Version 1)
Quarter: 2014Q2

REPORT INFORMATION
  Report Type: Spontaneous
  Country: US (occurrence: US)
  Receive Date: 20140418
  Receipt Date: 20140418
  Transmission Date: 20141212
  Serious: Yes (Other)
  Sender: FDA-Public Use
  Company Number: US-ASTRAZENECA-2014SE25541

PATIENT
  Age: 708 Month
  Sex: Female

DRUGS (7)
  1. OMEPRAZOLE [Suspect]
     Indication: GASTROOESOPHAGEAL REFLUX DISEASE
     Route: 048
  2. NEXIUM [Suspect]
     Route: 048
     Dates: start: 201403
  3. PREVACID [Concomitant]
  4. WARFARIN [Concomitant]
     Indication: PULMONARY EMBOLISM
     Dates: start: 20131215
  5. WARFARIN [Concomitant]
     Indication: THROMBOSIS
     Dates: start: 20131215
  6. WARFARIN [Concomitant]
     Indication: PULMONARY EMBOLISM
     Dosage: 5 MG, DAILY, ONE AND HALF TABLETS ON MONDAYS AND THURSDAYS
  7. WARFARIN [Concomitant]
     Indication: THROMBOSIS
     Dosage: 5 MG, DAILY, ONE AND HALF TABLETS ON MONDAYS AND THURSDAYS

REACTIONS (7)
  - Respiratory failure [Unknown]
  - Pulmonary embolism [Unknown]
  - Thrombosis [Unknown]
  - Hepatomegaly [Not Recovered/Not Resolved]
  - Alopecia [Not Recovered/Not Resolved]
  - Nausea [Not Recovered/Not Resolved]
  - Vomiting [Not Recovered/Not Resolved]
